FAERS Safety Report 23517557 (Version 8)
Quarter: 2024Q3

REPORT INFORMATION
  Report Type: Spontaneous
  Country: US (occurrence: US)
  Receive Date: 20240213
  Receipt Date: 20240923
  Transmission Date: 20241016
  Serious: Yes (Other)
  Sender: PFIZER
  Company Number: US-PFIZER INC-PV202300125106

PATIENT
  Age: 8 Month

DRUGS (3)
  1. BENEFIX [Suspect]
     Active Substance: COAGULATION FACTOR IX RECOMBINANT HUMAN\ISOPROPYL ALCOHOL
     Indication: Factor IX deficiency
     Dosage: INFUSE BENEFIX 500 IU (+5%) = 100 IU / KG X 1 DAILY ON DEMAND
  2. BENEFIX [Suspect]
     Active Substance: COAGULATION FACTOR IX RECOMBINANT HUMAN\ISOPROPYL ALCOHOL
     Dosage: TOTAL DOSAGE 1: 900IU +5% # OF DOSES: 4
  3. BENEFIX [Suspect]
     Active Substance: COAGULATION FACTOR IX RECOMBINANT HUMAN\ISOPROPYL ALCOHOL
     Dosage: INFUSE BENEFIX 1100 UNITS (+5% ) = 100 UNITS/KG DAILY ON DEMAND FOR A BLEED

REACTIONS (4)
  - Haemorrhage [Unknown]
  - Tongue haemorrhage [Not Recovered/Not Resolved]
  - Epistaxis [Unknown]
  - Nasal injury [Unknown]
